FAERS Safety Report 11930566 (Version 1)
Quarter: 2016Q1

REPORT INFORMATION
  Report Type: Spontaneous
  Country: US (occurrence: None)
  Receive Date: 20160119
  Receipt Date: 20160119
  Transmission Date: 20160526
  Serious: Yes (Life-Threatening, Hospitalization, Disabling, Other)
  Sender: FDA-Public Use
  Company Number: None

PATIENT
  Age: 58 Year
  Sex: Female
  Weight: 114.76 kg

DRUGS (5)
  1. MORPHINE [Concomitant]
     Active Substance: MORPHINE
  2. VITA FUSION WOMAN^S VITAMIN [Concomitant]
  3. ATORVASTATIN 20MG CARE ZONE ONLINE PHARMACY [Suspect]
     Active Substance: ATORVASTATIN
     Indication: BLOOD CHOLESTEROL INCREASED
     Route: 048
  4. NARCO [Concomitant]
  5. CALCIUM CHEW [Concomitant]

REACTIONS (3)
  - Nausea [None]
  - Vomiting [None]
  - Arthralgia [None]

NARRATIVE: CASE EVENT DATE: 20160115
